FAERS Safety Report 4636346-1 (Version None)
Quarter: 2005Q2

REPORT INFORMATION
  Report Type: 
  Country: None (occurrence: None)
  Receive Date: 20050415
  Receipt Date: 20041221
  Transmission Date: 20051028
  Serious: Yes (Other)
  Sender: FDA-Public Use
  Company Number: US-BRISTOL-MYERS SQUIBB COMPANY-12803912

PATIENT
  Age: 71 Year
  Sex: Female
  Weight: 73 kg

DRUGS (12)
  1. CARBOPLATIN [Suspect]
     Indication: OVARIAN CANCER
     Dosage: INITIAL CYCLE BEGAN 21-AUG-2004.
     Route: 042
     Dates: start: 20041207, end: 20041207
  2. TAXOL [Concomitant]
     Indication: OVARIAN CANCER
     Route: 042
     Dates: start: 20040821
  3. LOPRESSOR [Concomitant]
  4. LOTENSIN [Concomitant]
  5. DITROPAN [Concomitant]
  6. LEVOTHROID [Concomitant]
  7. ENALAPRIL [Concomitant]
  8. ATIVAN [Concomitant]
  9. VICODIN [Concomitant]
  10. CALCIUM GLUCONATE [Concomitant]
  11. M.V.I. [Concomitant]
  12. ASPIRIN [Concomitant]

REACTIONS (1)
  - HYPERSENSITIVITY [None]
